FAERS Safety Report 9587286 (Version 1)
Quarter: 2013Q4

REPORT INFORMATION
  Report Type: Spontaneous
  Country: ES (occurrence: ES)
  Receive Date: 20131003
  Receipt Date: 20131003
  Transmission Date: 20140711
  Serious: Yes (Disabling)
  Sender: FDA-Public Use
  Company Number: ES-ABBVIE-13P-144-1153970-00

PATIENT
  Sex: Female

DRUGS (2)
  1. KLACID [Suspect]
     Indication: BRONCHITIS
     Route: 048
     Dates: start: 20130919, end: 20130925
  2. KLACID [Suspect]
     Indication: INFLUENZA

REACTIONS (2)
  - Ageusia [Unknown]
  - Anosmia [Unknown]
